FAERS Safety Report 4372046-3 (Version None)
Quarter: 2004Q2

REPORT INFORMATION
  Report Type: 
  Country: None (occurrence: None)
  Receive Date: 20040602
  Receipt Date: 20040519
  Transmission Date: 20050107
  Serious: Yes (Death)
  Sender: FDA-Public Use
  Company Number: 2004-BP-03868MX

PATIENT
  Age: 60 Year
  Sex: Female

DRUGS (3)
  1. SIFROL(PRAMIPEXOLE DIHYDROCHLORIDE (TA) [Suspect]
     Indication: PARKINSON'S DISEASE
     Dosage: 0.75 MG (0.25 MG, 1 TA T.I.D.) PO
     Route: 048
     Dates: start: 20040201, end: 20040501
  2. LEVODOPA(LEVODOPA) (NR) [Concomitant]
  3. PROZAC(FLUOXETINE HYDROCHLORIDE) (TA) [Concomitant]

REACTIONS (1)
  - SUDDEN DEATH [None]
